FAERS Safety Report 10086821 (Version 3)
Quarter: 2015Q3

REPORT INFORMATION
  Report Type: Spontaneous
  Country: US (occurrence: US)
  Receive Date: 20140418
  Receipt Date: 20150811
  Transmission Date: 20151125
  Serious: Yes (Hospitalization, Other)
  Sender: FDA-Public Use
  Company Number: US-GLAXOSMITHKLINE-A1069854A

PATIENT
  Age: 55 Year
  Sex: Female

DRUGS (27)
  1. LINZESS [Concomitant]
     Active Substance: LINACLOTIDE
  2. TRAZODONE [Concomitant]
     Active Substance: TRAZODONE HYDROCHLORIDE
  3. TEMAZEPAM. [Concomitant]
     Active Substance: TEMAZEPAM
  4. FUROSEMIDE. [Concomitant]
     Active Substance: FUROSEMIDE
  5. OS-CAL 500 [Concomitant]
  6. PERICOLACE [Concomitant]
  7. NYSTATIN. [Concomitant]
     Active Substance: NYSTATIN
  8. PNEUMO 23 (PNEUMOCOCCAL POLYSACCHARIDE VACCINE) [Concomitant]
  9. DULOXETINE. [Concomitant]
     Active Substance: DULOXETINE
  10. ASCORBIC ACID. [Concomitant]
     Active Substance: ASCORBIC ACID
  11. GLYBURIDE. [Concomitant]
     Active Substance: GLYBURIDE
  12. GLYSET [Concomitant]
     Active Substance: MIGLITOL
  13. LANTUS SOLOSTAR [Concomitant]
     Active Substance: INSULIN GLARGINE
  14. BUPROPION XL [Concomitant]
     Active Substance: BUPROPION
  15. ASPIRIN (BABY) [Concomitant]
     Active Substance: ASPIRIN
  16. ADVAIR HFA [Suspect]
     Active Substance: FLUTICASONE PROPIONATE\SALMETEROL XINAFOATE
     Indication: CHRONIC OBSTRUCTIVE PULMONARY DISEASE
     Dosage: 250/50 MCG AND 500/50 MCG, U
     Route: 065
  17. CLONAZEPAM. [Concomitant]
     Active Substance: CLONAZEPAM
  18. DOCUSATE CALCIUM. [Concomitant]
     Active Substance: DOCUSATE CALCIUM
  19. POLYETHYLENE GLYCOL [Concomitant]
     Active Substance: POLYETHYLENE GLYCOLS
  20. ALBUTEROL NEBULIZER [Concomitant]
     Active Substance: ALBUTEROL
  21. METFORMIN [Concomitant]
     Active Substance: METFORMIN HYDROCHLORIDE
  22. ALBUTEROL. [Concomitant]
     Active Substance: ALBUTEROL
  23. NORCO [Concomitant]
     Active Substance: ACETAMINOPHEN\HYDROCODONE BITARTRATE
  24. SPIRIVA [Concomitant]
     Active Substance: TIOTROPIUM BROMIDE MONOHYDRATE
  25. ATORVASTATIN [Concomitant]
     Active Substance: ATORVASTATIN
  26. DURAGESIC TRANSDERMAL [Concomitant]
  27. IIV3 SEASONAL INFLUENZA VACCINE [Concomitant]

REACTIONS (16)
  - Productive cough [Unknown]
  - Cough [Unknown]
  - Obstructive airways disorder [Unknown]
  - Hospitalisation [Unknown]
  - Squamous cell carcinoma of lung [Not Recovered/Not Resolved]
  - Arteriosclerosis coronary artery [Not Recovered/Not Resolved]
  - Lung neoplasm malignant [Unknown]
  - Lung infection [Unknown]
  - Respiratory gas exchange disorder [Unknown]
  - Pneumonia [Unknown]
  - Regurgitation [Unknown]
  - Pneumonitis [Unknown]
  - Pulmonary radiation injury [Unknown]
  - Pulmonary arterial pressure increased [Unknown]
  - Sputum discoloured [Unknown]
  - Dyspnoea [Unknown]

NARRATIVE: CASE EVENT DATE: 201502
